FAERS Safety Report 4481183-4 (Version None)
Quarter: 2004Q3

REPORT INFORMATION
  Report Type: 
  Country: None (occurrence: None)
  Receive Date: 20040923
  Receipt Date: 20040630
  Transmission Date: 20050211
  Serious: No
  Sender: FDA-Public Use
  Company Number: USA040258672

PATIENT
  Age: 79 Year
  Sex: Female
  Weight: 65.7716 kg

DRUGS (1)
  1. FORTEO [Suspect]
     Indication: OSTEOARTHRITIS
     Dosage: 20 UG/DAY/1 DAY
     Dates: start: 20030701, end: 20040609

REACTIONS (3)
  - INJECTION SITE HAEMORRHAGE [None]
  - NAUSEA [None]
  - VERTIGO [None]
